FAERS Safety Report 18011315 (Version 1)
Quarter: 2020Q3

REPORT INFORMATION
  Report Type: Spontaneous
  Country: CA (occurrence: CA)
  Receive Date: 20200712
  Receipt Date: 20200712
  Transmission Date: 20201103
  Serious: Yes (Life-Threatening, Hospitalization)
  Sender: FDA-Public Use
  Company Number: CA-TEVA-2020-CA-1798153

PATIENT
  Age: 12 Year
  Sex: Male
  Weight: 51 kg

DRUGS (6)
  1. CISPLATIN INJECTION BP SINGLE DOSE VIALS. 10MG/10ML AND 50MG/50ML.PRES [Suspect]
     Active Substance: CISPLATIN
     Indication: OSTEOSARCOMA
     Route: 042
  2. ZINECARD [Concomitant]
     Active Substance: DEXRAZOXANE HYDROCHLORIDE
     Dosage: POWDER FOR SOLUTION INTRAVENOUS
  3. FILGRASTIM [Concomitant]
     Active Substance: FILGRASTIM
  4. ADRIAMYCIN [Suspect]
     Active Substance: DOXORUBICIN HYDROCHLORIDE
     Indication: OSTEOSARCOMA
     Dosage: 55 MILLIGRAM DAILY;
     Route: 042
  5. METHOTREXATE INJECTION, USP [Suspect]
     Active Substance: METHOTREXATE
     Indication: OSTEOSARCOMA
     Route: 042
  6. LEUCOVORIN. [Concomitant]
     Active Substance: LEUCOVORIN

REACTIONS (3)
  - Neutropenia [Recovering/Resolving]
  - Headache [Recovering/Resolving]
  - Pyrexia [Recovering/Resolving]
